FAERS Safety Report 6272149-2 (Version None)
Quarter: 2009Q3

REPORT INFORMATION
  Report Type: 
  Country: None (occurrence: None)
  Receive Date: 20090717
  Receipt Date: 20090706
  Transmission Date: 20100115
  Serious: Yes (Life-Threatening, Other)
  Sender: FDA-Public Use
  Company Number: JP-PFIZER INC-2009220668

PATIENT
  Age: 4 Year

DRUGS (8)
  1. GABAPEN [Suspect]
     Indication: EPILEPSY
     Dosage: 400 MG, UNK
     Dates: start: 20080813, end: 20081018
  2. CARBAMAZEPINE [Suspect]
     Indication: EPILEPSY
     Dosage: UNK
     Route: 048
     Dates: end: 20081008
  3. SELENICA-R [Suspect]
     Indication: EPILEPSY
     Dosage: 200 MG, UNK
     Route: 048
     Dates: end: 20081018
  4. ALEVIATIN [Suspect]
     Indication: EPILEPSY
     Dosage: 120 MG, UNK
     Route: 048
     Dates: start: 20081001, end: 20081008
  5. HYDANTOL [Suspect]
     Indication: EPILEPSY
     Dosage: 125 MG, UNK
     Route: 048
     Dates: start: 20081015, end: 20081018
  6. EXCEGRAN [Concomitant]
     Dates: end: 20081018
  7. MYSTAN [Concomitant]
     Dates: end: 20081018
  8. RISPERDAL [Concomitant]
     Dates: end: 20081018

REACTIONS (1)
  - TOXIC EPIDERMAL NECROLYSIS [None]
